FAERS Safety Report 5732792-3 (Version None)
Quarter: 2008Q2

REPORT INFORMATION
  Report Type: 
  Country: None (occurrence: None)
  Receive Date: 20080507
  Receipt Date: 20080507
  Transmission Date: 20081010
  Serious: Yes (Hospitalization)
  Sender: FDA-Public Use
  Company Number: None

PATIENT
  Age: 82 Year
  Sex: Male

DRUGS (2)
  1. ASPIRIN [Suspect]
     Dosage: 325 MG PO
     Route: 048
  2. PIROXICAM [Suspect]
     Dosage: 10 MG PO
     Route: 048

REACTIONS (3)
  - ANAEMIA [None]
  - FACIAL PALSY [None]
  - GASTRIC ULCER [None]
